FAERS Safety Report 4562239-4 (Version None)
Quarter: 2005Q1

REPORT INFORMATION
  Report Type: 
  Country: None (occurrence: None)
  Receive Date: 20050124
  Receipt Date: 20050114
  Transmission Date: 20050727
  Serious: Yes (Hospitalization)
  Sender: FDA-Public Use
  Company Number: KII-2005-0014672

PATIENT
  Age: 48 Year
  Sex: Male

DRUGS (10)
  1. OXYCONTIN [Suspect]
     Dosage: ORAL
     Route: 048
  2. BENZODIAZEPINE DERIVATIVES () [Suspect]
     Dosage: ORAL
     Route: 048
  3. FUROSEMIDE (FUROSEMIDE) [Suspect]
     Dosage: ORAL
     Route: 048
  4. THIAZOLIDINEDIONE [Suspect]
     Dosage: ORAL
     Route: 048
  5. SSRI () [Suspect]
     Dosage: ORAL
     Route: 048
  6. METHOTREXATE [Suspect]
     Dosage: ORAL
     Route: 048
  7. SSRI () [Suspect]
     Dosage: ORAL
     Route: 048
  8. METHOTREXATE [Suspect]
     Dosage: ORAL
     Route: 048
  9. OTHER HEMATOLOGICAL AGENTS () [Suspect]
     Dosage: ORAL
     Route: 048
  10. ACETYLSALICYLIC ACID SRT [Suspect]

REACTIONS (4)
  - BLOOD PRESSURE INCREASED [None]
  - HEART RATE INCREASED [None]
  - INTENTIONAL MISUSE [None]
  - SOMNOLENCE [None]
